FAERS Safety Report 16758958 (Version 2)
Quarter: 2019Q4

REPORT INFORMATION
  Report Type: Spontaneous
  Country: GR (occurrence: GR)
  Receive Date: 20190830
  Receipt Date: 20191023
  Transmission Date: 20200122
  Serious: Yes (Hospitalization, Other)
  Sender: FDA-Public Use
  Company Number: GR-GLAXOSMITHKLINE-GR2019155618

PATIENT
  Age: 68 Year
  Sex: Male

DRUGS (2)
  1. ANORO ELLIPTA [Suspect]
     Active Substance: UMECLIDINIUM BROMIDE\VILANTEROL TRIFENATATE
     Indication: PRODUCT USED FOR UNKNOWN INDICATION
     Dosage: UNK
     Route: 048
  2. ZIDROLIN [Suspect]
     Active Substance: TAMSULOSIN
     Indication: BENIGN PROSTATIC HYPERPLASIA
     Dosage: UNK UNK, 1D

REACTIONS (12)
  - Neck pain [Recovered/Resolved]
  - Cardiac discomfort [Unknown]
  - Arthralgia [Unknown]
  - Bronchitis [Unknown]
  - Seizure [Unknown]
  - Dyspnoea [Unknown]
  - Dry mouth [Unknown]
  - Syncope [Unknown]
  - Sinusitis [Unknown]
  - Nasal congestion [Unknown]
  - Chest pain [Unknown]
  - Pain in extremity [Recovered/Resolved]

NARRATIVE: CASE EVENT DATE: 20190816
